FAERS Safety Report 6846795-9 (Version None)
Quarter: 2010Q3

REPORT INFORMATION
  Report Type: 
  Country: None (occurrence: None)
  Receive Date: 20100715
  Receipt Date: 20070919
  Transmission Date: 20110219
  Serious: No
  Sender: FDA-Public Use
  Company Number: US-PFIZER INC-2007079638

PATIENT
  Age: 50 Year
  Sex: Female
  Weight: 70.9 kg

DRUGS (6)
  1. CHANTIX [Suspect]
     Indication: SMOKING CESSATION THERAPY
     Dates: start: 20070101
  2. ALCOHOL [Suspect]
  3. VITAMINS [Concomitant]
  4. DRUG, UNSPECIFIED [Concomitant]
  5. CALCIUM [Concomitant]
  6. FISH OIL [Concomitant]

REACTIONS (6)
  - ABDOMINAL DISCOMFORT [None]
  - ABNORMAL BEHAVIOUR [None]
  - ALCOHOL INTERACTION [None]
  - DYSPEPSIA [None]
  - INSOMNIA [None]
  - NAUSEA [None]
